FAERS Safety Report 8023933-6 (Version None)
Quarter: 2012Q1

REPORT INFORMATION
  Report Type: 
  Country: None (occurrence: None)
  Receive Date: 20120105
  Receipt Date: 20120102
  Transmission Date: 20120608
  Serious: Yes (Other)
  Sender: FDA-Public Use
  Company Number: BR-PFIZER INC-2012000378

PATIENT
  Age: 52 Year
  Sex: Female

DRUGS (9)
  1. CARVEDILOL [Concomitant]
     Indication: CARDIAC DISORDER
     Dosage: 6.25 MG, 2X/DAY (1 TABLET, 2X/DAY)
     Route: 058
  2. LIPITOR [Suspect]
     Indication: BLOOD CHOLESTEROL
     Dosage: 40 MG, 1X/DAY (1 TABLET DAILY)
     Route: 048
     Dates: start: 20090102
  3. AMLODIPINE BESYLATE [Concomitant]
     Indication: BLOOD PRESSURE
     Dosage: 5 MG, 25X/DAY
  4. OMEPRAZOLE [Concomitant]
     Indication: GASTRIC DISORDER
     Dosage: 20 MG, 1X/DAY (1 TABLET, 1X/DAY)
  5. PRADAXA [Concomitant]
     Indication: ANTICOAGULANT THERAPY
     Dosage: 110 MG, 2X/DAY (1 TABLET, 2X/DAY)
  6. ALDACTONE [Concomitant]
     Indication: CARDIAC DISORDER
     Dosage: 25 MG, 1X/DAY (1 TABLET DAILY)
  7. SYNTHROID [Concomitant]
     Indication: THYROID DISORDER
     Dosage: 25 MG, 1X/DAY (1 TABLET DAILY)
  8. LOSARTAN [Concomitant]
     Indication: BLOOD PRESSURE
     Dosage: 50 MG, 2X/DAY (1 TABLET, 2X/DAY)
  9. ISOSORBIDE MONONITRATE [Concomitant]
     Indication: CARDIAC DISORDER
     Dosage: 20 MG, EVERY 8 HOURS

REACTIONS (5)
  - HYPERTENSION [None]
  - BLOOD CHOLESTEROL INCREASED [None]
  - HYPOTHYROIDISM [None]
  - CARDIAC DISORDER [None]
  - CORONARY ARTERY DISEASE [None]
